FAERS Safety Report 18830717 (Version 3)
Quarter: 2021Q1

REPORT INFORMATION
  Report Type: Spontaneous
  Country: SE (occurrence: SE)
  Receive Date: 20210203
  Receipt Date: 20210222
  Transmission Date: 20210419
  Serious: Yes (Other)
  Sender: FDA-Public Use
  Company Number: SE-GLAXOSMITHKLINE-SE2021EME024327

PATIENT
  Sex: Male

DRUGS (2)
  1. VENTOLINE EVOHALER [Suspect]
     Active Substance: ALBUTEROL SULFATE
     Indication: PRODUCT USED FOR UNKNOWN INDICATION
     Dosage: UNK
  2. VENTOLINE EVOHALER [Suspect]
     Active Substance: ALBUTEROL SULFATE
     Indication: PRODUCT USED FOR UNKNOWN INDICATION
     Dosage: UNK

REACTIONS (5)
  - Near death experience [Unknown]
  - Product complaint [Unknown]
  - Wrong technique in product usage process [Unknown]
  - Tearfulness [Unknown]
  - Tremor [Unknown]
